FAERS Safety Report 10697598 (Version 3)
Quarter: 2015Q1

REPORT INFORMATION
  Report Type: Spontaneous
  Country: JP (occurrence: JP)
  Receive Date: 20150108
  Receipt Date: 20150218
  Transmission Date: 20150721
  Serious: Yes (Death)
  Sender: FDA-Public Use
  Company Number: JP-MALLINCKRODT-T201404136

PATIENT
  Age: 39 Year
  Sex: Female
  Weight: 48 kg

DRUGS (15)
  1. REFLEX [Suspect]
     Active Substance: MIRTAZAPINE
     Indication: PRODUCT USED FOR UNKNOWN INDICATION
     Dosage: 7.5 MG, UNK
     Route: 048
     Dates: start: 20140918, end: 20140919
  2. METHADONE [Suspect]
     Active Substance: METHADONE HYDROCHLORIDE
     Dosage: 15 MG (30 MG DAILY DOSE)
     Route: 048
     Dates: start: 20140923, end: 20140928
  3. OXINORM [Concomitant]
     Active Substance: OXYCODONE HYDROCHLORIDE
     Dosage: 10 MG, PRN
     Route: 048
     Dates: start: 20140909, end: 20140915
  4. REBAMIPIDE [Concomitant]
     Active Substance: REBAMIPIDE
     Dosage: 300 MG
     Route: 048
  5. SPIRONOLACTONE. [Concomitant]
     Active Substance: SPIRONOLACTONE
     Dosage: 50 MG
     Route: 048
     Dates: start: 20141007, end: 20141011
  6. PANTOSIN [Concomitant]
     Active Substance: PANTETHINE
     Dosage: 600 MG
     Route: 048
  7. MAGLAX [Concomitant]
     Active Substance: MAGNESIUM OXIDE
     Dosage: 660 MG
     Route: 048
  8. OXYFAST [Concomitant]
     Active Substance: OXYCODONE
     Dosage: 3 MG, PRN
     Route: 051
     Dates: start: 20141108, end: 20141110
  9. METHADONE [Suspect]
     Active Substance: METHADONE HYDROCHLORIDE
     Indication: CANCER PAIN
     Dosage: 5 MG (15 MG DAILY DOSE)
     Route: 048
     Dates: start: 20140909, end: 20140915
  10. CRAVIT [Concomitant]
     Active Substance: LEVOFLOXACIN
     Dosage: 500 MG
     Route: 048
     Dates: start: 20140914, end: 20140918
  11. LOXOPROFEN [Concomitant]
     Active Substance: LOXOPROFEN
     Dosage: 180 MG
  12. FUROSEMIDE. [Concomitant]
     Active Substance: FUROSEMIDE
     Dosage: 20 MG
     Route: 048
     Dates: start: 20141007, end: 20141011
  13. FENTANYL CITRATE. [Concomitant]
     Active Substance: FENTANYL CITRATE
     Dosage: 50 -200 ?G, PRN
     Route: 002
     Dates: start: 20140917, end: 20141107
  14. METHADONE [Suspect]
     Active Substance: METHADONE HYDROCHLORIDE
     Dosage: 10 MG (20 MG DAILY DOSE)
     Route: 048
     Dates: start: 20140916, end: 20140922
  15. METHADONE [Suspect]
     Active Substance: METHADONE HYDROCHLORIDE
     Dosage: 25 MG DAILY DOSE
     Route: 048
     Dates: start: 20140929, end: 20141108

REACTIONS (5)
  - Insomnia [Not Recovered/Not Resolved]
  - Breast cancer [Fatal]
  - Delirium [Not Recovered/Not Resolved]
  - Somnolence [Not Recovered/Not Resolved]
  - Urinary tract infection [Recovered/Resolved]

NARRATIVE: CASE EVENT DATE: 20140914
